FAERS Safety Report 8790453 (Version 1)
Quarter: 2012Q4

REPORT INFORMATION
  Report Type: Spontaneous
  Country: US (occurrence: None)
  Receive Date: 20120911
  Receipt Date: 20120911
  Transmission Date: 20130627
  Serious: Yes (Hospitalization)
  Sender: FDA-Public Use
  Company Number: None

PATIENT
  Age: 45 Year
  Sex: Female
  Weight: 77 kg

DRUGS (1)
  1. CRIZOTINIB [Suspect]
     Indication: LUNG ADENOCARCINOMA METASTATIC
     Dates: start: 20120801, end: 20120821

REACTIONS (8)
  - Malaise [None]
  - Fatigue [None]
  - Dyspnoea [None]
  - Condition aggravated [None]
  - Pyrexia [None]
  - Weight decreased [None]
  - Oedema peripheral [None]
  - Malignant neoplasm progression [None]
